FAERS Safety Report 7126097-6 (Version None)
Quarter: 2010Q4

REPORT INFORMATION
  Report Type: 
  Country: None (occurrence: None)
  Receive Date: 20101115
  Receipt Date: 20101109
  Transmission Date: 20110411
  Serious: Yes (Death, Life-Threatening, Other)
  Sender: FDA-Public Use
  Company Number: 083-21880-10071039

PATIENT
  Age: 71 Year
  Sex: Female

DRUGS (1)
  1. REVLIMID [Suspect]
     Indication: MULTIPLE MYELOMA
     Dosage: 21 DAYS WITH A 7 DAY BREAK, ORAL
     Route: 048
     Dates: start: 20100115, end: 20100215

REACTIONS (1)
  - RENAL FAILURE [None]
